FAERS Safety Report 23193144 (Version 1)
Quarter: 2023Q4

REPORT INFORMATION
  Report Type: Report from Study
  Country: US (occurrence: US)
  Receive Date: 20231116
  Receipt Date: 20231116
  Transmission Date: 20240109
  Serious: Yes (Other)
  Sender: FDA-Public Use
  Company Number: US-BIOGEN-2023BI01236147

PATIENT
  Sex: Female

DRUGS (6)
  1. AVONEX PEN [Suspect]
     Active Substance: INTERFERON BETA-1A
     Indication: Relapsing-remitting multiple sclerosis
     Dosage: SINCE 23 YEARS
     Route: 050
     Dates: start: 2000
  2. AVONEX PEN [Suspect]
     Active Substance: INTERFERON BETA-1A
  3. AVONEX PEN [Suspect]
     Active Substance: INTERFERON BETA-1A
  4. AVONEX PEN [Suspect]
     Active Substance: INTERFERON BETA-1A
  5. TYLENOL [Concomitant]
     Active Substance: ACETAMINOPHEN
     Indication: Premedication
     Route: 050
  6. ALEVE [Concomitant]
     Active Substance: NAPROXEN SODIUM
     Indication: Premedication
     Route: 050

REACTIONS (1)
  - Retinal aneurysm [Unknown]

NARRATIVE: CASE EVENT DATE: 20210101
